FAERS Safety Report 8427046-0 (Version None)
Quarter: 2012Q2

REPORT INFORMATION
  Report Type: 
  Country: None (occurrence: None)
  Receive Date: 20120323
  Receipt Date: 20111108
  Transmission Date: 20120825
  Serious: Yes (Disabling)
  Sender: FDA-Public Use
  Company Number: 163-21880-11043456

PATIENT
  Age: 68 Year
  Sex: Male

DRUGS (7)
  1. COREG (CARVEDILOL)(UNKNOWN) [Concomitant]
  2. INSULIN (INSULIN)(UNKNOWN) [Concomitant]
  3. GLEEVEC [Concomitant]
  4. REVLIMID [Suspect]
     Indication: MULTIPLE MYELOMA
     Dosage: 10 MG, QOD, PO
     Route: 048
     Dates: start: 20110310, end: 20110401
  5. REVLIMID [Suspect]
     Indication: MYELODYSPLASTIC SYNDROME
     Dosage: 10 MG, QOD, PO
     Route: 048
     Dates: start: 20110310, end: 20110401
  6. COUMADIN [Concomitant]
  7. ALLOPURINOL [Concomitant]

REACTIONS (1)
  - RENAL FAILURE [None]
